FAERS Safety Report 7464008-4 (Version None)
Quarter: 2011Q2

REPORT INFORMATION
  Report Type: 
  Country: None (occurrence: None)
  Receive Date: 20110506
  Receipt Date: 20110504
  Transmission Date: 20111010
  Serious: Yes (Death, Hospitalization)
  Sender: FDA-Public Use
  Company Number: US-CEPHALON-2011001414

PATIENT
  Sex: Male
  Weight: 93 kg

DRUGS (1)
  1. TREANDA [Suspect]
     Indication: CHRONIC LYMPHOCYTIC LEUKAEMIA
     Route: 042
     Dates: start: 20100928, end: 20110105

REACTIONS (5)
  - SEPSIS [None]
  - DEATH [None]
  - CHRONIC LYMPHOCYTIC LEUKAEMIA [None]
  - RESPIRATORY FAILURE [None]
  - HERPES ZOSTER [None]
